FAERS Safety Report 7639714-9 (Version None)
Quarter: 2011Q3

REPORT INFORMATION
  Report Type: 
  Country: None (occurrence: None)
  Receive Date: 20110727
  Receipt Date: 20110721
  Transmission Date: 20111222
  Serious: Yes (Other)
  Sender: FDA-Public Use
  Company Number: US-PFIZER INC-2011098127

PATIENT
  Age: 57 Year
  Sex: Male
  Weight: 81.633 kg

DRUGS (5)
  1. VIAGRA [Suspect]
     Dosage: 50 MG, UNK
     Route: 048
     Dates: start: 20110505
  2. VIAGRA [Suspect]
  3. VIAGRA [Suspect]
  4. CALCIUM [Concomitant]
     Indication: BONE DISORDER
     Dosage: UNK
  5. VITAMIN TAB [Concomitant]
     Dosage: UNK

REACTIONS (7)
  - OEDEMA GENITAL [None]
  - PENILE HAEMATOMA [None]
  - ANGIOPATHY [None]
  - ERECTILE DYSFUNCTION [None]
  - PROCTALGIA [None]
  - SCROTAL PAIN [None]
  - ANORECTAL DISORDER [None]
